FAERS Safety Report 8778397 (Version 2)
Quarter: 2012Q4

REPORT INFORMATION
  Report Type: Report from Study
  Country: JP (occurrence: JP)
  Receive Date: 20120911
  Receipt Date: 20121120
  Transmission Date: 20130627
  Serious: Yes (Other)
  Sender: FDA-Public Use
  Company Number: JP-009507513-1209JPN000006

PATIENT
  Age: 88 Year
  Sex: Female

DRUGS (11)
  1. REMERON [Suspect]
     Indication: DEPRESSION
     Dosage: 1 DF, qd
     Route: 048
     Dates: start: 20101006, end: 20101012
  2. REMERON [Suspect]
     Dosage: 2 DF, qd
     Route: 048
     Dates: start: 20101013, end: 20101019
  3. REMERON [Suspect]
     Dosage: 1 DF, qd
     Route: 048
     Dates: start: 20101020, end: 20101215
  4. CYMBALTA [Concomitant]
     Indication: DEPRESSION
     Dosage: Dose: 40 mg per day as needed
     Route: 048
     Dates: start: 20100721
  5. ARICEPT D [Concomitant]
     Indication: DEPRESSION
     Dosage: Dose: 5 mg per day as needed.
     Route: 048
     Dates: start: 20100915
  6. SERENAL (OXAZOLAM) [Concomitant]
     Indication: DEPRESSION
     Dosage: 20 mg, prn
     Route: 048
     Dates: start: 20100623
  7. LENDORMIN [Concomitant]
     Indication: DEPRESSION
     Dosage: 0.25 mg, prn
     Route: 048
     Dates: start: 20100623
  8. ALMARL [Concomitant]
     Indication: ANGINA PECTORIS
     Dosage: 10 mg, prn
     Route: 048
  9. DIOVAN [Concomitant]
     Indication: HYPERTENSION
     Dosage: 80 mg, prn
     Route: 048
  10. AMLODIPINE [Concomitant]
     Indication: HYPERTENSION
     Dosage: 5 mg, qd
     Route: 048
  11. NITOROL-R [Concomitant]
     Indication: ANGINA PECTORIS
     Dosage: 40 mg, prn
     Route: 048

REACTIONS (2)
  - Sleep apnoea syndrome [Recovered/Resolved]
  - Somnolence [Recovered/Resolved]
